FAERS Safety Report 8338952-X (Version None)
Quarter: 2012Q2

REPORT INFORMATION
  Report Type: 
  Country: None (occurrence: None)
  Receive Date: 20120507
  Receipt Date: 20120425
  Transmission Date: 20120825
  Serious: Yes (Other)
  Sender: FDA-Public Use
  Company Number: FR-BRISTOL-MYERS SQUIBB COMPANY-15940257

PATIENT
  Age: 68 Year
  Sex: Female
  Weight: 52 kg

DRUGS (10)
  1. METHYLPREDNISOLONE [Concomitant]
     Dosage: 120MG 7,+28DEC10,11JAN,12+26APR,10+24MAY,7+21JUN11
     Route: 042
     Dates: start: 20101207, end: 20110621
  2. FLUOROURACIL [Concomitant]
     Indication: COLON CANCER
     Dosage: 400MG/M2 7DEC,08,28DEC10,11-11JAN11,12-12,26-26APR;10-10,24-24MAY,07+21JUN11,1200MG/M2 7,8,28DEC10
     Route: 042
     Dates: start: 20101207, end: 20110621
  3. ATROPINE [Concomitant]
     Dates: start: 20101207, end: 20110621
  4. ERBITUX [Suspect]
     Indication: COLON CANCER
     Dosage: 250MG/M2 15DEC10,500MG/M2 28DEC,11JAN11,12+26APR,10+24MAY,7+21JUN2011
     Route: 042
     Dates: start: 20101207, end: 20110621
  5. CALCIUM [Concomitant]
     Dosage: 7,+28DEC10,11JAN,12+26APR,10+24MAY,7+21JUN11
     Route: 042
     Dates: start: 20101207, end: 20110621
  6. ZOPICLONE [Concomitant]
     Indication: DEPRESSION
     Route: 048
  7. IRINOTECAN HCL [Concomitant]
     Indication: COLON CANCER
     Dosage: 7+28DEC10,11JAN,12+26APR,10+24MAY,7+21JUN11
     Route: 042
     Dates: start: 20101207, end: 20110621
  8. ONDANSETRON [Concomitant]
     Indication: PREMEDICATION
     Dosage: 8MG 07+28DEC10,11JAN,12+26APR,10+24MAY,7+21JUN11
     Route: 042
     Dates: start: 20101207, end: 20110621
  9. POLARAMINE [Concomitant]
     Dosage: 7,15+28DEC10,11JAN,12+26APR,10+24MAY,7+21JUN11
     Route: 042
     Dates: start: 20101207, end: 20110621
  10. PRIMPERAN TAB [Concomitant]
     Indication: PREMEDICATION
     Route: 042
     Dates: start: 20101208, end: 20101208

REACTIONS (3)
  - BLOOD IMMUNOGLOBULIN G INCREASED [None]
  - ARTHRALGIA [None]
  - BONE PAIN [None]
